FAERS Safety Report 7753742-4 (Version None)
Quarter: 2011Q3

REPORT INFORMATION
  Report Type: 
  Country: None (occurrence: None)
  Receive Date: 20110915
  Receipt Date: 20110901
  Transmission Date: 20111222
  Serious: Yes (Other)
  Sender: FDA-Public Use
  Company Number: US-BAYER-2011-081650

PATIENT
  Age: 87 Year
  Sex: Male
  Weight: 73 kg

DRUGS (2)
  1. PHILLIPS' MILK OF MAGNESIA LIQUID ORIGINAL [Suspect]
     Dosage: 2 TABLESPOONS
     Route: 048
     Dates: start: 20110501, end: 20110901
  2. PLAVIX [Suspect]

REACTIONS (1)
  - FAECES DISCOLOURED [None]
